FAERS Safety Report 7250450 (Version 5)
Quarter: 2012Q4

REPORT INFORMATION
  Report Type: 
  Country: US (occurrence: US)
  Receive Date: 20100120
  Receipt Date: 20121012
  Transmission Date: 20130627
  Serious: Yes (Hospitalization, Other)
  Sender: FDA-Public Use
  Company Number: US-PFIZER INC-2007029584

PATIENT
  Age: 63 Year
  Sex: Female
  Weight: 76.19 kg

DRUGS (6)
  1. CHANTIX [Suspect]
     Indication: SMOKING CESSATION THERAPY
     Dosage: 0.5 mg, 1x/day
     Route: 048
     Dates: start: 200901, end: 2009
  2. CHANTIX [Suspect]
     Dosage: UNK
     Route: 048
     Dates: start: 2009, end: 200902
  3. CHANTIX [Suspect]
     Dosage: 0.5 mg, daily
     Route: 048
     Dates: start: 2012, end: 20120501
  4. CHANTIX [Suspect]
     Dosage: UNK
     Route: 048
  5. PERCOCET [Concomitant]
     Indication: BACK PAIN
     Dosage: UNK
     Route: 048
  6. OPANA [Concomitant]
     Indication: BACK DISORDER
     Dosage: 10 mg, 2x/day
     Route: 048

REACTIONS (4)
  - Pneumonia [Recovered/Resolved]
  - Nausea [Unknown]
  - Stress [Unknown]
  - Depressed mood [Recovering/Resolving]
